FAERS Safety Report 6945418 (Version 22)
Quarter: 2014Q2

REPORT INFORMATION
  Report Type: Spontaneous
  Country: US (occurrence: US)
  Receive Date: 20090319
  Receipt Date: 20140520
  Transmission Date: 20141212
  Serious: Yes (Death, Hospitalization, Other)
  Sender: FDA-Public Use
  Company Number: PHEH2009US02400

PATIENT
  Sex: Female

DRUGS (30)
  1. AREDIA [Suspect]
     Indication: METASTASES TO BONE
     Dosage: 90 MG, UNK
     Route: 042
  2. AREDIA [Suspect]
     Indication: BREAST CANCER METASTATIC
  3. ZOMETA [Suspect]
     Indication: METASTASES TO BONE
     Dosage: UNK UNK, UNK
     Route: 042
  4. ZOMETA [Suspect]
     Indication: BREAST CANCER METASTATIC
     Dosage: 3.0 MG, QMO
  5. PAMIDRONATE DISODIUM [Suspect]
     Dosage: UNK UKN, UNK
  6. FOSAMAX [Suspect]
     Dosage: UNK UKN, UNK
  7. LEVAQUIN [Concomitant]
     Dosage: 500 MG, QD
  8. NORVASC                                 /DEN/ [Concomitant]
     Dosage: 10 MG, QD
  9. LIPITOR                                 /NET/ [Concomitant]
     Dosage: 40 MG, QD
  10. DYAZIDE [Concomitant]
  11. PLETAL [Concomitant]
     Dosage: 100 MG, BID
  12. PLAVIX [Concomitant]
     Dosage: 75 MG, QD
  13. FEMARA [Concomitant]
     Dosage: 2.5 MG, QD
  14. CLONIDINE [Concomitant]
     Dosage: 0.1 MG, BID
  15. CIPRO [Concomitant]
     Dosage: 750 MG, BID
     Route: 048
  16. TOBRAMYCIN [Concomitant]
  17. VICODIN [Concomitant]
  18. AMBIEN [Concomitant]
  19. LETROZOLE [Concomitant]
     Dosage: 2.5 MG, QD
  20. ASPIRIN [Concomitant]
     Dosage: 81 MG, QD
  21. HYDROCHLOROTHIAZIDE [Concomitant]
     Dosage: 25 MG, QD
  22. LISINOPRIL [Concomitant]
  23. SIMVASTATIN [Concomitant]
  24. PROCRIT [Concomitant]
  25. PENTOXIFYLLINE [Concomitant]
  26. NIACIN [Concomitant]
  27. QUININE [Concomitant]
  28. POTASSIUM [Concomitant]
  29. MAGNESIUM [Concomitant]
  30. VITAMINS [Concomitant]

REACTIONS (128)
  - Coma [Fatal]
  - Gastric ulcer [Unknown]
  - Gastrointestinal haemorrhage [Unknown]
  - Gastritis [Unknown]
  - Tachycardia [Unknown]
  - Hypotension [Unknown]
  - Fatigue [Unknown]
  - Cellulitis [Unknown]
  - Abdominal pain upper [Unknown]
  - Diverticulitis [Unknown]
  - Vertigo [Unknown]
  - Partial seizures [Unknown]
  - Paralysis [Unknown]
  - Osteonecrosis of jaw [Unknown]
  - Pain [Unknown]
  - Infection [Unknown]
  - Emotional distress [Unknown]
  - Anxiety [Unknown]
  - Deformity [Unknown]
  - Physical disability [Unknown]
  - Pain in jaw [Unknown]
  - Osteomyelitis [Unknown]
  - Pharyngitis [Unknown]
  - Oesophagitis [Unknown]
  - Dysphagia [Unknown]
  - Oral cavity fistula [Unknown]
  - Pseudomonas infection [Unknown]
  - Laryngotracheal oedema [Unknown]
  - Pulmonary mass [Unknown]
  - Radiculopathy [Unknown]
  - Vomiting [Unknown]
  - Diarrhoea [Unknown]
  - Syncope [Unknown]
  - Chronic obstructive pulmonary disease [Unknown]
  - Small intestinal obstruction [Unknown]
  - Diverticulum [Unknown]
  - Dizziness [Unknown]
  - Central nervous system lesion [Unknown]
  - Arrhythmia [Unknown]
  - Hypertension [Unknown]
  - Ventricular hypertrophy [Unknown]
  - Cholelithiasis [Unknown]
  - Gallbladder disorder [Unknown]
  - Renal failure [Unknown]
  - Peripheral arterial occlusive disease [Unknown]
  - Cholecystitis chronic [Unknown]
  - Adenoma benign [Unknown]
  - Anaemia [Unknown]
  - Intervertebral disc degeneration [Unknown]
  - Hiatus hernia [Unknown]
  - Hypercalcaemia [Unknown]
  - Urinary tract infection [Unknown]
  - Exposed bone in jaw [Unknown]
  - Purulent discharge [Unknown]
  - Bone disorder [Unknown]
  - Tooth loss [Unknown]
  - Peripheral artery stenosis [Unknown]
  - Aortic arteriosclerosis [Unknown]
  - Metastases to lymph nodes [Unknown]
  - Subclavian artery stenosis [Unknown]
  - Atelectasis [Unknown]
  - Hypokalaemia [Unknown]
  - Peripheral vascular disorder [Unknown]
  - Coronary artery disease [Unknown]
  - Adenomyosis [Unknown]
  - Dyspnoea exertional [Unknown]
  - Proteinuria [Unknown]
  - Hyperlipidaemia [Unknown]
  - Cataract [Unknown]
  - Swelling face [Unknown]
  - Atrial fibrillation [Unknown]
  - Swelling [Unknown]
  - Cerebrovascular accident [Unknown]
  - Tooth abscess [Unknown]
  - Tenderness [Unknown]
  - Fistula discharge [Unknown]
  - Gingivitis [Unknown]
  - Candida infection [Unknown]
  - Osteosclerosis [Unknown]
  - Erythema [Unknown]
  - Limb discomfort [Unknown]
  - Jaw fracture [Unknown]
  - Jaw disorder [Unknown]
  - Fall [Unknown]
  - Breast mass [Unknown]
  - Breast calcifications [Unknown]
  - Pain in extremity [Unknown]
  - Tooth infection [Unknown]
  - Discomfort [Unknown]
  - Bone pain [Unknown]
  - Muscle atrophy [Unknown]
  - Leriche syndrome [Unknown]
  - Ureteral disorder [Unknown]
  - Renal atrophy [Unknown]
  - Emphysema [Unknown]
  - Upper-airway cough syndrome [Unknown]
  - Bone loss [Unknown]
  - Gingival disorder [Unknown]
  - Gingival pain [Unknown]
  - Sensitivity of teeth [Unknown]
  - Toothache [Unknown]
  - Gingival erythema [Unknown]
  - Gingival swelling [Unknown]
  - Loose tooth [Unknown]
  - Pollakiuria [Unknown]
  - Neuropathy peripheral [Unknown]
  - Joint effusion [Unknown]
  - Muscular weakness [Unknown]
  - Leukopenia [Unknown]
  - Arthropod bite [Unknown]
  - Papule [Unknown]
  - Macule [Unknown]
  - Lymphoedema [Unknown]
  - Kidney fibrosis [Unknown]
  - Alopecia [Unknown]
  - Rash pruritic [Unknown]
  - Hepatic steatosis [Unknown]
  - Pneumonia [Unknown]
  - Lymphadenitis [Unknown]
  - Wound secretion [Unknown]
  - Abscess [Unknown]
  - Bone swelling [Unknown]
  - Metastases to bone [Unknown]
  - Malignant neoplasm progression [Unknown]
  - Weight decreased [Unknown]
  - Dermal cyst [Unknown]
  - Skin lesion [Unknown]
  - Trismus [Unknown]
